FAERS Safety Report 9222936 (Version 3)
Quarter: 2013Q2

REPORT INFORMATION
  Report Type: Spontaneous
  Country: US (occurrence: US)
  Receive Date: 20130410
  Receipt Date: 20130425
  Transmission Date: 20140414
  Serious: Yes (Other)
  Sender: FDA-Public Use
  Company Number: US-GILEAD-2013-0073051

PATIENT
  Age: 61 Year
  Sex: Male

DRUGS (8)
  1. LETAIRIS [Suspect]
     Indication: PULMONARY ARTERIAL HYPERTENSION
     Dosage: 10 MG, QD
     Route: 048
     Dates: start: 20130205
  2. ATORVASTATIN [Concomitant]
  3. AMITRIPTYLINE [Concomitant]
  4. LEVOTHYROXINE [Concomitant]
  5. PROBENECID [Concomitant]
  6. WARFARIN [Concomitant]
  7. FLOLAN [Concomitant]
     Dosage: UNK
     Dates: start: 2000
  8. SILDENAFIL [Suspect]

REACTIONS (1)
  - Thrombocytopenia [Unknown]
